FAERS Safety Report 21011228 (Version 1)
Quarter: 2022Q2

REPORT INFORMATION
  Report Type: Spontaneous
  Country: US (occurrence: None)
  Receive Date: 20220624
  Receipt Date: 20220624
  Transmission Date: 20220720
  Serious: Yes (Hospitalization)
  Sender: FDA-Public Use
  Company Number: None

PATIENT
  Sex: Female

DRUGS (2)
  1. TADALAFIL [Suspect]
     Active Substance: TADALAFIL
     Indication: Pulmonary arterial hypertension
     Dosage: FREQUENCY : DAILY;?
     Route: 048
     Dates: start: 20200401
  2. OPSUMIT [Suspect]
     Active Substance: MACITENTAN

REACTIONS (4)
  - Dyspepsia [None]
  - Dyspepsia [None]
  - Throat irritation [None]
  - Skin infection [None]
